FAERS Safety Report 19424873 (Version 2)
Quarter: 2023Q2

REPORT INFORMATION
  Report Type: Spontaneous
  Country: US (occurrence: None)
  Receive Date: 20210617
  Receipt Date: 20230517
  Transmission Date: 20230721
  Serious: No
  Sender: FDA-Public Use
  Company Number: US-ROCHE-2754973

PATIENT
  Sex: Female

DRUGS (2)
  1. ACTEMRA [Suspect]
     Active Substance: TOCILIZUMAB
     Indication: Neuromyelitis optica spectrum disorder
     Dosage: OTHER?SDV 200MG/10ML
     Route: 042
     Dates: start: 202101
  2. ACTEMRA [Suspect]
     Active Substance: TOCILIZUMAB
     Indication: Neuromyelitis optica spectrum disorder
     Dosage: STRENGTH: 162MG/0.9ML
     Route: 058
     Dates: start: 202208

REACTIONS (2)
  - Off label use [Unknown]
  - No adverse event [Unknown]
